FAERS Safety Report 9463387 (Version 4)
Quarter: 2013Q3

REPORT INFORMATION
  Report Type: Spontaneous
  Country: GB (occurrence: GB)
  Receive Date: 20130819
  Receipt Date: 20130924
  Transmission Date: 20140515
  Serious: Yes (Death, Hospitalization, Disabling)
  Sender: FDA-Public Use
  Company Number: GB-ROCHE-1217623

PATIENT
  Sex: Male

DRUGS (11)
  1. RITUXIMAB [Suspect]
     Indication: B-CELL LYMPHOMA STAGE IV
     Route: 042
     Dates: start: 20110908
  2. RITUXIMAB [Suspect]
     Route: 042
     Dates: start: 20110908
  3. RITUXIMAB [Suspect]
     Route: 042
     Dates: start: 20110908
  4. RITUXIMAB [Suspect]
     Route: 042
     Dates: start: 20120502
  5. RITUXIMAB [Suspect]
     Route: 042
     Dates: start: 20120502
  6. RITUXIMAB [Suspect]
     Route: 042
     Dates: start: 20120627
  7. RITUXIMAB [Suspect]
     Route: 042
     Dates: start: 20120627
  8. DOXORUBICINE [Concomitant]
     Indication: B-CELL LYMPHOMA STAGE IV
     Dosage: 3 WEEKLY
     Route: 042
     Dates: start: 20110908
  9. VINCRISTINE [Concomitant]
     Indication: B-CELL LYMPHOMA STAGE IV
     Dosage: 3 WEEKLY
     Route: 042
     Dates: start: 20110908
  10. PREDNISOLONE [Concomitant]
     Indication: B-CELL LYMPHOMA STAGE IV
     Dosage: 3 WEEKLY
     Route: 048
     Dates: start: 20110909
  11. CYCLOPHOSPHAMIDE [Concomitant]
     Indication: B-CELL LYMPHOMA STAGE IV
     Route: 042
     Dates: start: 20110908

REACTIONS (4)
  - Dyspnoea [Fatal]
  - Lung disorder [Fatal]
  - Obliterative bronchiolitis [Unknown]
  - Lower respiratory tract infection [Unknown]
